FAERS Safety Report 21726454 (Version 2)
Quarter: 2023Q2

REPORT INFORMATION
  Report Type: Spontaneous
  Country: FR (occurrence: FR)
  Receive Date: 20221214
  Receipt Date: 20230427
  Transmission Date: 20230722
  Serious: Yes (Life-Threatening, Hospitalization, Other)
  Sender: FDA-Public Use
  Company Number: FR-BRISTOL-MYERS SQUIBB COMPANY-2022-152286

PATIENT
  Age: 39 Year
  Sex: Male

DRUGS (9)
  1. OPDIVO [Suspect]
     Active Substance: NIVOLUMAB
     Indication: Metastatic malignant melanoma
  2. YERVOY [Suspect]
     Active Substance: IPILIMUMAB
     Indication: Metastatic malignant melanoma
  3. BINIMETINIB [Suspect]
     Active Substance: BINIMETINIB
     Indication: Malignant melanoma stage IV
  4. BINIMETINIB [Suspect]
     Active Substance: BINIMETINIB
     Dosage: UNK FULL DOSE
     Dates: start: 20220427
  5. ENCORAFENIB [Suspect]
     Active Substance: ENCORAFENIB
     Indication: Malignant melanoma stage IV
  6. ENCORAFENIB [Suspect]
     Active Substance: ENCORAFENIB
     Dosage: 300 MG, DAILY FOR 4 DAYS
  7. ENCORAFENIB [Suspect]
     Active Substance: ENCORAFENIB
     Dosage: 150 MG, DAILY FOR 4 DAYS IN MONOTHERAPY
  8. ENCORAFENIB [Suspect]
     Active Substance: ENCORAFENIB
  9. ENCORAFENIB [Suspect]
     Active Substance: ENCORAFENIB
     Dosage: UNK FULL DOSE
     Dates: start: 20220427

REACTIONS (1)
  - Tumour lysis syndrome [Recovered/Resolved]

NARRATIVE: CASE EVENT DATE: 20220428
